FAERS Safety Report 4690121-0 (Version None)
Quarter: 2005Q2

REPORT INFORMATION
  Report Type: 
  Country: None (occurrence: None)
  Receive Date: 20050613
  Receipt Date: 20050602
  Transmission Date: 20051028
  Serious: Yes (Hospitalization)
  Sender: FDA-Public Use
  Company Number: MK200506-0035-1

PATIENT
  Sex: Male

DRUGS (2)
  1. METHADOSE [Suspect]
     Indication: DEPENDENCE
     Dosage: IV AND PO
     Route: 042
  2. STIMULANTS (SUCH AS AMPHETAMINE) [Suspect]
     Indication: DRUG ABUSER
     Dosage: IV
     Route: 042

REACTIONS (6)
  - EXANTHEM [None]
  - INCORRECT ROUTE OF DRUG ADMINISTRATION [None]
  - INTENTIONAL MISUSE [None]
  - RASH ERYTHEMATOUS [None]
  - RASH PRURITIC [None]
  - SKIN EXFOLIATION [None]
